FAERS Safety Report 15347526 (Version 3)
Quarter: 2018Q3

REPORT INFORMATION
  Report Type: Spontaneous
  Country: BR (occurrence: BR)
  Receive Date: 20180904
  Receipt Date: 20180928
  Transmission Date: 20181010
  Serious: Yes (Hospitalization)
  Sender: FDA-Public Use
  Company Number: BR-SA-2018SA234769

PATIENT
  Age: 41 Year
  Sex: Female
  Weight: 68 kg

DRUGS (8)
  1. CYCLOPHOSPHAMIDE. [Suspect]
     Active Substance: CYCLOPHOSPHAMIDE
     Indication: BREAST CANCER
     Dosage: 1016.4 MG, Q3W
     Route: 042
     Dates: start: 20180702
  2. TAXOTERE [Suspect]
     Active Substance: DOCETAXEL
     Dosage: 114.345 MG, UNK
  3. TAXOTERE [Suspect]
     Active Substance: DOCETAXEL
     Dosage: 114.345 MG, UNK
  4. TAXOTERE [Suspect]
     Active Substance: DOCETAXEL
     Dosage: 114.35 UNK
  5. DEXAMETHASONE. [Concomitant]
     Active Substance: DEXAMETHASONE
     Indication: ALLERGY PROPHYLAXIS
     Dosage: 4 MG, Q12H
     Route: 065
     Dates: start: 20180630
  6. NAUSEDRON [Concomitant]
     Active Substance: ONDANSETRON HYDROCHLORIDE
     Indication: PROPHYLAXIS OF NAUSEA AND VOMITING
     Dosage: 8 MG, Q6H
     Route: 065
     Dates: start: 20180703
  7. TAXOTERE [Suspect]
     Active Substance: DOCETAXEL
     Indication: BREAST CANCER FEMALE
     Dosage: 127.02 MG, Q3W
     Route: 042
     Dates: start: 20180702, end: 20180702
  8. TAXOTERE [Suspect]
     Active Substance: DOCETAXEL
     Dosage: 127.02 MG, Q4W
     Route: 042
     Dates: start: 20180813, end: 20180813

REACTIONS (3)
  - Pyrexia [Recovered/Resolved]
  - Gastrointestinal disorder [Recovered/Resolved]
  - Urine analysis abnormal [Recovered/Resolved]

NARRATIVE: CASE EVENT DATE: 20180711
